FAERS Safety Report 24968070 (Version 1)
Quarter: 2025Q1

REPORT INFORMATION
  Report Type: Spontaneous
  Country: US (occurrence: US)
  Receive Date: 20250214
  Receipt Date: 20250214
  Transmission Date: 20250409
  Serious: No
  Sender: AVEO PHARMACEUTICALS
  Company Number: US-AVEO PHARMACEUTICALS, INC.-2024-AVEO-US000459

PATIENT

DRUGS (1)
  1. FOTIVDA [Suspect]
     Active Substance: TIVOZANIB HYDROCHLORIDE
     Indication: Renal cell carcinoma
     Dosage: 1.34 MG, DAILY FOR 21 DAYS WITH 7 DAYS OFF (28-DAY CYCLE)
     Route: 048
     Dates: start: 20240516

REACTIONS (4)
  - Stomatitis [Recovered/Resolved]
  - Dysphonia [Unknown]
  - Hypertension [Unknown]
  - Heart rate increased [Unknown]

NARRATIVE: CASE EVENT DATE: 20240101
